FAERS Safety Report 12212396 (Version 2)
Quarter: 2016Q1

REPORT INFORMATION
  Report Type: Report from Study
  Country: BE (occurrence: BE)
  Receive Date: 20160326
  Receipt Date: 20160330
  Transmission Date: 20160526
  Serious: Yes (Death, Hospitalization, Other)
  Sender: FDA-Public Use
  Company Number: BE-BRISTOL-MYERS SQUIBB COMPANY-BMS-2016-022815

PATIENT
  Age: 59 Year
  Sex: Female

DRUGS (3)
  1. TRAZODONE [Concomitant]
     Active Substance: TRAZODONE HYDROCHLORIDE
     Indication: PRODUCT USED FOR UNKNOWN INDICATION
     Route: 065
  2. ZOLPIDEM [Concomitant]
     Active Substance: ZOLPIDEM\ZOLPIDEM TARTRATE
     Indication: PRODUCT USED FOR UNKNOWN INDICATION
     Route: 065
  3. NIVOLUMAB BMS [Suspect]
     Active Substance: NIVOLUMAB
     Indication: LUNG CANCER METASTATIC
     Dosage: 168 MG, Q2WK
     Route: 065
     Dates: start: 20151217

REACTIONS (4)
  - Dysphagia [Unknown]
  - Oesophageal stent insertion [Unknown]
  - Death [Fatal]
  - Hyponatraemia [Unknown]

NARRATIVE: CASE EVENT DATE: 20160303
